FAERS Safety Report 23545632 (Version 1)
Quarter: 2024Q1

REPORT INFORMATION
  Report Type: Report from Study
  Country: IT (occurrence: IT)
  Receive Date: 20240220
  Receipt Date: 20240220
  Transmission Date: 20240410
  Serious: Yes (Life-Threatening)
  Sender: FDA-Public Use
  Company Number: None

PATIENT
  Age: 44 Year
  Sex: Female
  Weight: 54 kg

DRUGS (4)
  1. CISPLATIN [Suspect]
     Active Substance: CISPLATIN
     Indication: Pancreatic carcinoma
     Dosage: 30MG/M2 IN SF 250 ML INFUSED AT REDUCED RATE
     Dates: start: 20240104, end: 20240118
  2. GEMCITABINE HYDROCHLORIDE [Concomitant]
     Active Substance: GEMCITABINE HYDROCHLORIDE
     Indication: Pancreatic carcinoma
     Dosage: 1.224 MG EVERY 14 DAYS
  3. ABRAXANE [Concomitant]
     Active Substance: PACLITAXEL
     Indication: Pancreatic carcinoma
     Dosage: 229.50 MG EVERY 14 DAYS
  4. CAPECITABINE [Concomitant]
     Active Substance: CAPECITABINE
     Indication: Pancreatic carcinoma
     Dosage: 25200MG TOTAL PER CYCLE (14 DAYS), EQUAL TO 1000MG
     Dates: start: 20240104

REACTIONS (6)
  - Skin reaction [Recovered/Resolved]
  - Pruritus [Recovered/Resolved]
  - Hypotension [Recovered/Resolved]
  - Oxygen saturation decreased [Recovered/Resolved]
  - Vomiting [Recovered/Resolved]
  - Dyspnoea [Recovered/Resolved]

NARRATIVE: CASE EVENT DATE: 20240104
